FAERS Safety Report 21777773 (Version 1)
Quarter: 2022Q4

REPORT INFORMATION
  Report Type: Report from Study
  Country: US (occurrence: US)
  Receive Date: 20221226
  Receipt Date: 20221226
  Transmission Date: 20230113
  Serious: No
  Sender: FDA-Public Use
  Company Number: US-ABBVIE-4240511

PATIENT
  Age: 55 Year
  Sex: Female

DRUGS (1)
  1. HUMIRA [Suspect]
     Active Substance: ADALIMUMAB
     Indication: Ankylosing spondylitis
     Dosage: CITRATE FREE
     Route: 058
     Dates: start: 20210811

REACTIONS (10)
  - Illness [Unknown]
  - Wheezing [Unknown]
  - Malaise [Unknown]
  - Ear pain [Unknown]
  - Tremor [Unknown]
  - Abdominal discomfort [Unknown]
  - Respiratory rate increased [Unknown]
  - Confusional state [Unknown]
  - COVID-19 [Recovering/Resolving]
  - Hypoaesthesia [Unknown]

NARRATIVE: CASE EVENT DATE: 20221101
